FAERS Safety Report 5928266-7 (Version None)
Quarter: 2008Q4

REPORT INFORMATION
  Report Type: 
  Country: None (occurrence: None)
  Receive Date: 20081022
  Receipt Date: 20081022
  Transmission Date: 20090506
  Serious: Yes (Life-Threatening, Other)
  Sender: FDA-Public Use
  Company Number: None

PATIENT
  Age: 22 Year
  Sex: Female
  Weight: 47.4 kg

DRUGS (17)
  1. CEFTAZIDIME [Suspect]
     Indication: LUNG INFECTION PSEUDOMONAL
     Dosage: 1 GM EVERY 8 HOURS IV
     Route: 042
     Dates: start: 20071208, end: 20071215
  2. CENTRUM [Concomitant]
  3. PANCREASE MT-16 [Concomitant]
  4. ESOMEPRAZOLE MAGNESIUM [Concomitant]
  5. ESTROSTEP OCP [Concomitant]
  6. PHYTONIDIONE [Concomitant]
  7. VITAMIN D [Concomitant]
  8. CALCIUM + D [Concomitant]
  9. AZITHROMYCIN [Concomitant]
  10. HUMALOG [Concomitant]
  11. SERTRALINE [Concomitant]
  12. LEVALBUTEROL NEBS [Concomitant]
  13. TOBI NEBS [Concomitant]
  14. HEPERTONIC SALINE [Concomitant]
  15. ASTHMANEX MDI [Concomitant]
  16. AQUADEKS [Concomitant]
  17. ALBUTEROL [Concomitant]

REACTIONS (5)
  - ASTHENIA [None]
  - DRUG HYPERSENSITIVITY [None]
  - DYSPNOEA [None]
  - HYPERHIDROSIS [None]
  - OXYGEN SATURATION DECREASED [None]
